FAERS Safety Report 4445351-X (Version None)
Quarter: 2004Q3

REPORT INFORMATION
  Report Type: 
  Country: None (occurrence: None)
  Receive Date: 20040729
  Receipt Date: 20030926
  Transmission Date: 20050211
  Serious: Yes (Death)
  Sender: FDA-Public Use
  Company Number: 2003UW12262

PATIENT
  Age: 48 Year

DRUGS (2)
  1. ELAVIL [Suspect]
  2. ALCOHOL [Suspect]

REACTIONS (1)
  - COMPLETED SUICIDE [None]
